FAERS Safety Report 4479584-3 (Version None)
Quarter: 2004Q4

REPORT INFORMATION
  Report Type: 
  Country: None (occurrence: None)
  Receive Date: 20041018
  Receipt Date: 20041011
  Transmission Date: 20050328
  Serious: Yes (Death)
  Sender: FDA-Public Use
  Company Number: 2004-10-0494

PATIENT
  Age: 50 Year
  Sex: Male

DRUGS (1)
  1. TEMODAL [Suspect]
     Dosage: 135 MG QD ORAL
     Route: 048

REACTIONS (2)
  - BONE MARROW DEPRESSION [None]
  - SEPSIS [None]
